FAERS Safety Report 17059747 (Version 2)
Quarter: 2019Q4

REPORT INFORMATION
  Report Type: Spontaneous
  Country: US (occurrence: US)
  Receive Date: 20191121
  Receipt Date: 20191121
  Transmission Date: 20200122
  Serious: No
  Sender: FDA-Public Use
  Company Number: US-NOVOPROD-640473

PATIENT
  Sex: Female

DRUGS (3)
  1. NOVOLOG [Suspect]
     Active Substance: INSULIN ASPART
     Dosage: 10 UNITS PER MEAL
     Route: 058
     Dates: start: 2009
  2. NOVOLOG [Suspect]
     Active Substance: INSULIN ASPART
     Indication: TYPE 1 DIABETES MELLITUS
     Dosage: 10 UNITS PER MEAL
     Route: 058
     Dates: start: 2009
  3. NOVOLOG [Suspect]
     Active Substance: INSULIN ASPART
     Indication: TYPE 1 DIABETES MELLITUS
     Dosage: 10 UNITS PER MEAL
     Route: 058
     Dates: start: 2009

REACTIONS (2)
  - Blood glucose increased [Not Recovered/Not Resolved]
  - Blood ketone body [Unknown]

NARRATIVE: CASE EVENT DATE: 201806
